FAERS Safety Report 15375481 (Version 1)
Quarter: 2018Q3

REPORT INFORMATION
  Report Type: Spontaneous
  Country: GB (occurrence: GB)
  Receive Date: 20180912
  Receipt Date: 20180912
  Transmission Date: 20181010
  Serious: Yes (Other)
  Sender: FDA-Public Use
  Company Number: GB-ABBVIE-18K-167-2479560-00

PATIENT
  Age: 46 Year
  Sex: Male

DRUGS (3)
  1. ADALIMUMAB [Suspect]
     Active Substance: ADALIMUMAB
     Indication: PSORIASIS
  2. ADALIMUMAB [Suspect]
     Active Substance: ADALIMUMAB
     Indication: PSORIATIC ARTHROPATHY
     Route: 058
     Dates: start: 2014
  3. ADALIMUMAB [Suspect]
     Active Substance: ADALIMUMAB
     Indication: CROHN^S DISEASE

REACTIONS (4)
  - Rash erythematous [Unknown]
  - Exfoliative rash [Unknown]
  - Solar dermatitis [Unknown]
  - Systemic lupus erythematosus [Not Recovered/Not Resolved]
